FAERS Safety Report 20730654 (Version 1)
Quarter: 2022Q2

REPORT INFORMATION
  Report Type: Spontaneous
  Country: US (occurrence: US)
  Receive Date: 20220420
  Receipt Date: 20220420
  Transmission Date: 20220721
  Serious: Yes (Other)
  Sender: FDA-Public Use
  Company Number: US-ASTELLAS-2022US012728

PATIENT
  Age: 70 Year
  Sex: Female

DRUGS (4)
  1. LEXISCAN [Suspect]
     Active Substance: REGADENOSON
     Indication: Product used for unknown indication
     Dosage: INJECTION: SINGLE-DOSE PRE-FILLED SYRINGE: 0.4 MG/5 ML (0.08 MG/ML), UNKNOWN FREQ.
     Route: 065
  2. LEXISCAN [Suspect]
     Active Substance: REGADENOSON
     Indication: Product used for unknown indication
     Dosage: INJECTION: SINGLE-DOSE PRE-FILLED SYRINGE: 0.4 MG/5 ML (0.08 MG/ML), UNKNOWN FREQ.
     Route: 065
  3. LEXISCAN [Suspect]
     Active Substance: REGADENOSON
     Indication: Product used for unknown indication
     Dosage: INJECTION: SINGLE-DOSE PRE-FILLED SYRINGE: 0.4 MG/5 ML (0.08 MG/ML), UNKNOWN FREQ.
     Route: 065
  4. LEXISCAN [Suspect]
     Active Substance: REGADENOSON
     Indication: Product used for unknown indication
     Dosage: INJECTION: SINGLE-DOSE PRE-FILLED SYRINGE: 0.4 MG/5 ML (0.08 MG/ML), UNKNOWN FREQ.
     Route: 065

REACTIONS (2)
  - Hypotension [Unknown]
  - Bradycardia [Unknown]
